FAERS Safety Report 9519008 (Version 1)
Quarter: 2013Q3

REPORT INFORMATION
  Report Type: Spontaneous
  Country: US (occurrence: US)
  Receive Date: 20130912
  Receipt Date: 20130912
  Transmission Date: 20140515
  Serious: Yes (Hospitalization, Other)
  Sender: FDA-Public Use
  Company Number: US-PFIZER INC-2013258389

PATIENT
  Age: 87 Year
  Sex: Male

DRUGS (1)
  1. TOVIAZ [Suspect]
     Dosage: 8 MG, SINGLE
     Dates: start: 2013, end: 2013

REACTIONS (2)
  - Urinary retention [Unknown]
  - Calculus bladder [Unknown]
